FAERS Safety Report 18061172 (Version 2)
Quarter: 2021Q1

REPORT INFORMATION
  Report Type: Spontaneous
  Country: CA (occurrence: CA)
  Receive Date: 20200723
  Receipt Date: 20210330
  Transmission Date: 20210419
  Serious: Yes (Other)
  Sender: FDA-Public Use
  Company Number: CA-PFIZER INC-2020279040

PATIENT

DRUGS (6)
  1. ACETAMINOPHEN. [Concomitant]
     Active Substance: ACETAMINOPHEN
     Indication: PREMEDICATION
     Route: 065
  2. METHYLPREDNISOLONE SODIUM SUCCINATE. [Suspect]
     Active Substance: METHYLPREDNISOLONE SODIUM SUCCINATE
     Indication: OPSOCLONUS MYOCLONUS
  3. PREDNISONE. [Suspect]
     Active Substance: PREDNISONE
     Indication: OPSOCLONUS MYOCLONUS
     Dosage: UNK (MINIMUM 12?16 WEEKS)
     Route: 048
  4. RITUXIMAB. [Suspect]
     Active Substance: RITUXIMAB
     Indication: OPSOCLONUS MYOCLONUS
     Dosage: 500 MG/M2
     Route: 042
  5. DIPHENHYDRAMINE. [Concomitant]
     Active Substance: DIPHENHYDRAMINE
     Indication: PREMEDICATION
     Dosage: UNK
     Route: 065
  6. METHYLPREDNISOLONE SODIUM SUCCINATE. [Suspect]
     Active Substance: METHYLPREDNISOLONE SODIUM SUCCINATE
     Indication: PREMEDICATION
     Dosage: 30 MG/KG, 1X/DAY(3?5 DAYS)
     Route: 042

REACTIONS (3)
  - Neutropenia [Unknown]
  - Lymphopenia [Unknown]
  - Off label use [Unknown]
